FAERS Safety Report 5782078-6 (Version None)
Quarter: 2008Q2

REPORT INFORMATION
  Report Type: 
  Country: None (occurrence: None)
  Receive Date: 20080623
  Receipt Date: 20080612
  Transmission Date: 20081010
  Serious: Yes (Disabling, Other)
  Sender: FDA-Public Use
  Company Number: US-JNJFOC-20080603795

PATIENT
  Sex: Female
  Weight: 45.36 kg

DRUGS (1)
  1. RISPERDAL [Suspect]
     Indication: SCHIZOPHRENIA
     Route: 048

REACTIONS (5)
  - EYE DISORDER [None]
  - HEPATITIS B [None]
  - MUSCLE RIGIDITY [None]
  - RETINAL TEAR [None]
  - WEIGHT INCREASED [None]
